FAERS Safety Report 5932701-8 (Version None)
Quarter: 2008Q4

REPORT INFORMATION
  Report Type: 
  Country: None (occurrence: None)
  Receive Date: 20081023
  Receipt Date: 20081013
  Transmission Date: 20090506
  Serious: Yes (Hospitalization)
  Sender: FDA-Public Use
  Company Number: PAR_02388_2008

PATIENT
  Age: 75 Year
  Sex: Male

DRUGS (2)
  1. IBUPROFEN [Suspect]
     Indication: INTERVERTEBRAL DISC PROTRUSION
     Dosage: (DF)
     Dates: start: 20080101, end: 20080604
  2. ADIRO (ADIRO) 100 MG (NOT SPECIFIED) [Suspect]
     Indication: INTERVERTEBRAL DISC PROTRUSION
     Dosage: (100 MG)
     Dates: start: 20080101, end: 20080604

REACTIONS (2)
  - DYSPHAGIA [None]
  - OESOPHAGITIS [None]
